FAERS Safety Report 5456303-5 (Version None)
Quarter: 2007Q3

REPORT INFORMATION
  Report Type: 
  Country: None (occurrence: None)
  Receive Date: 20070918
  Receipt Date: 20070918
  Transmission Date: 20080115
  Serious: Yes (Hospitalization)
  Sender: FDA-Public Use
  Company Number: A0682257A

PATIENT
  Age: 51 Year
  Sex: Female

DRUGS (6)
  1. ALLI [Suspect]
     Route: 048
     Dates: end: 20070901
  2. ATENOL + CHLORTHALIDONE [Concomitant]
     Route: 048
  3. TRICOR [Concomitant]
     Route: 048
  4. LEVOTHROID [Concomitant]
     Route: 048
  5. AMITRIPTYLINE HCL [Concomitant]
     Route: 048
  6. ZYRTEC [Concomitant]
     Route: 048

REACTIONS (3)
  - ABDOMINAL PAIN UPPER [None]
  - APPENDICITIS [None]
  - GASTROINTESTINAL DISORDER [None]
